FAERS Safety Report 19106563 (Version 1)
Quarter: 2021Q2

REPORT INFORMATION
  Report Type: Spontaneous
  Country: US (occurrence: US)
  Receive Date: 20210407
  Receipt Date: 20210407
  Transmission Date: 20210717
  Serious: Yes (Hospitalization)
  Sender: FDA-Public Use
  Company Number: US-ELI_LILLY_AND_COMPANY-US202103012626

PATIENT
  Sex: Female

DRUGS (3)
  1. BAQSIMI [Suspect]
     Active Substance: GLUCAGON
     Indication: COVID-19
  2. BAQSIMI [Suspect]
     Active Substance: GLUCAGON
     Indication: COVID-19
  3. BAQSIMI [Suspect]
     Active Substance: GLUCAGON
     Indication: COVID-19

REACTIONS (2)
  - Drug ineffective [Unknown]
  - Hypoglycaemia [Unknown]

NARRATIVE: CASE EVENT DATE: 20210320
